FAERS Safety Report 6817078-8 (Version None)
Quarter: 2010Q3

REPORT INFORMATION
  Report Type: 
  Country: None (occurrence: None)
  Receive Date: 20100706
  Receipt Date: 20100624
  Transmission Date: 20110219
  Serious: Yes (Other)
  Sender: FDA-Public Use
  Company Number: JP-ASTRAZENECA-2010SE30454

PATIENT
  Age: 81 Year
  Sex: Female

DRUGS (3)
  1. UNISIA COMBINATION TABLETS HD [Suspect]
     Indication: HYPERTENSION
     Route: 048
     Dates: start: 20100617
  2. SPIRONOLACTONE [Suspect]
     Route: 048
     Dates: start: 20100617
  3. PAXIL [Suspect]
     Route: 048
     Dates: start: 20100617

REACTIONS (2)
  - FEELING ABNORMAL [None]
  - NAUSEA [None]
